FAERS Safety Report 9011822 (Version 1)
Quarter: 2012Q4

REPORT INFORMATION
  Report Type: Spontaneous
  Country: US (occurrence: None)
  Receive Date: 20121228
  Receipt Date: 20121228
  Transmission Date: 20130627
  Serious: Yes (Hospitalization, Other)
  Sender: FDA-Public Use
  Company Number: 20120773

PATIENT
  Age: 31 Year
  Sex: Female

DRUGS (1)
  1. PHENYTOIN SODIUM [Suspect]
     Indication: SEIZURE

REACTIONS (3)
  - Pyrexia [None]
  - Rash maculo-papular [None]
  - Appendicitis [None]
